FAERS Safety Report 4724331-0 (Version None)
Quarter: 2005Q3

REPORT INFORMATION
  Report Type: 
  Country: None (occurrence: None)
  Receive Date: 20050720
  Receipt Date: 20050720
  Transmission Date: 20060218
  Serious: Yes (Hospitalization)
  Sender: FDA-Public Use
  Company Number: None

PATIENT
  Sex: Male
  Weight: 81.6 kg

DRUGS (13)
  1. PREDNISONE [Suspect]
     Indication: FOLLICLE CENTRE LYMPHOMA, FOLLICULAR GRADE I, II, III
     Dosage: 80MG,QD, ORAL
     Route: 048
     Dates: start: 20050622, end: 20050705
  2. ADRIAMYCIN 200MG, BEDFORD [Suspect]
     Indication: FOLLICLE CENTRE LYMPHOMA, FOLLICULAR GRADE I, II, III
     Dosage: 73MG, D1 + D8, IV
     Route: 042
     Dates: start: 20080622, end: 20050629
  3. ADRIAMYCIN [Suspect]
  4. CYTOXAN [Suspect]
     Indication: FOLLICLE CENTRE LYMPHOMA, FOLLICULAR GRADE I, II, III
     Dosage: 1903MG, D1 AND D8
     Dates: start: 20050622
  5. CYTOXAN [Suspect]
     Indication: FOLLICLE CENTRE LYMPHOMA, FOLLICULAR GRADE I, II, III
     Dosage: 1903MG, D1 AND D8
     Dates: start: 20050629
  6. ETOPOSIDE [Suspect]
     Indication: FOLLICLE CENTRE LYMPHOMA, FOLLICULAR GRADE I, II, III
     Dosage: 320MG, D1 AND D8
     Dates: start: 20050622
  7. ETOPOSIDE [Suspect]
     Indication: FOLLICLE CENTRE LYMPHOMA, FOLLICULAR GRADE I, II, III
     Dosage: 320MG, D1 AND D8
     Dates: start: 20050629
  8. LOVENOX [Concomitant]
  9. PREVACID [Concomitant]
  10. EPOGEN [Concomitant]
  11. ZOMETA [Concomitant]
  12. BACTRIM DS [Concomitant]
  13. PROCRIT [Concomitant]

REACTIONS (2)
  - CATHETER SITE CELLULITIS [None]
  - FEBRILE NEUTROPENIA [None]
